FAERS Safety Report 24855581 (Version 1)
Quarter: 2025Q1

REPORT INFORMATION
  Report Type: Spontaneous
  Country: US (occurrence: US)
  Receive Date: 20250117
  Receipt Date: 20250117
  Transmission Date: 20250409
  Serious: Yes (Hospitalization, Other)
  Sender: BIOLOGICAL E. LIMITED
  Company Number: US-BELUSA-2025BELLIT0005

PATIENT

DRUGS (1)
  1. SUCCINYLCHOLINE CHLORIDE [Suspect]
     Active Substance: SUCCINYLCHOLINE CHLORIDE
     Indication: Neuromuscular blocking therapy
     Route: 065

REACTIONS (1)
  - Myasthenia gravis crisis [Recovered/Resolved]
